FAERS Safety Report 5398096-6 (Version None)
Quarter: 2007Q3

REPORT INFORMATION
  Report Type: 
  Country: None (occurrence: None)
  Receive Date: 20070724
  Receipt Date: 20070719
  Transmission Date: 20080115
  Serious: Yes (Death)
  Sender: FDA-Public Use
  Company Number: 20073901

PATIENT
  Age: 89 Year
  Sex: Female

DRUGS (3)
  1. LIORESAL [Suspect]
     Indication: MUSCLE SPASTICITY
     Dosage: 13.5 MCG, DAILY, INTRATHECAL
     Route: 037
  2. MORPHINE SULFATE [Concomitant]
  3. BUPIVACAINE [Concomitant]

REACTIONS (1)
  - CANCER PAIN [None]
